FAERS Safety Report 8887382 (Version 2)
Quarter: 2013Q3

REPORT INFORMATION
  Report Type: Spontaneous
  Country: US (occurrence: US)
  Receive Date: 20121101
  Receipt Date: 20130822
  Transmission Date: 20140515
  Serious: Yes (Other)
  Sender: FDA-Public Use
  Company Number: CHPA2012US022447

PATIENT
  Age: 63 Year
  Sex: Female

DRUGS (4)
  1. RITEAID PLP [Suspect]
     Indication: SMOKING CESSATION THERAPY
     Dosage: 21 MG, AT NIGHT
     Route: 062
     Dates: start: 20121016, end: 20121021
  2. RITEAID PLP [Suspect]
     Dosage: 21 MG, UNK
     Route: 062
  3. CLONIDINE [Concomitant]
     Dosage: UNK, UNK
  4. COZAAR [Concomitant]
     Dosage: UNK, UNK

REACTIONS (10)
  - Hypertension [Recovered/Resolved]
  - Crying [Recovered/Resolved]
  - Muscular weakness [Recovered/Resolved]
  - Feeling abnormal [Unknown]
  - Asthenia [Unknown]
  - Irritability [Recovered/Resolved]
  - Depressed mood [Recovered/Resolved]
  - Insomnia [Recovered/Resolved]
  - Application site erythema [Recovered/Resolved]
  - Abnormal dreams [Recovered/Resolved]
